FAERS Safety Report 9786150 (Version 2)
Quarter: 2014Q1

REPORT INFORMATION
  Report Type: Spontaneous
  Country: DE (occurrence: None)
  Receive Date: 20131224
  Receipt Date: 20140116
  Transmission Date: 20141002
  Serious: Yes (Other)
  Sender: FDA-Public Use
  Company Number: NL01PV13.34912

PATIENT
  Age: 65 Year
  Sex: Male

DRUGS (2)
  1. TAMSULOSIN [Suspect]
  2. METOPROLOL (METOPROLOL) [Suspect]

REACTIONS (2)
  - Blindness unilateral [None]
  - Visual impairment [None]
